FAERS Safety Report 5429063-1 (Version None)
Quarter: 2007Q3

REPORT INFORMATION
  Report Type: 
  Country: None (occurrence: None)
  Receive Date: 20070829
  Receipt Date: 20070607
  Transmission Date: 20080115
  Serious: No
  Sender: FDA-Public Use
  Company Number: A0655132A

PATIENT
  Age: 58 Year
  Sex: Female

DRUGS (2)
  1. MALARONE [Suspect]
     Indication: MALARIA PROPHYLAXIS
     Dosage: 1TAB PER DAY
     Route: 065
  2. LARIAM [Suspect]
     Indication: MALARIA PROPHYLAXIS
     Dosage: 250MG UNKNOWN
     Route: 065

REACTIONS (1)
  - DRUG DISPENSING ERROR [None]
